FAERS Safety Report 17218767 (Version 3)
Quarter: 2020Q1

REPORT INFORMATION
  Report Type: Spontaneous
  Country: JP (occurrence: JP)
  Receive Date: 20191231
  Receipt Date: 20200303
  Transmission Date: 20200409
  Serious: Yes (Other)
  Sender: FDA-Public Use
  Company Number: JP-JNJFOC-20191241733

PATIENT
  Age: 71 Year
  Sex: Female
  Weight: 34 kg

DRUGS (2)
  1. ROMOSOZUMAB [Interacting]
     Active Substance: ROMOSOZUMAB
     Indication: OSTEOPOROSIS
     Route: 065
     Dates: start: 20190904, end: 20190904
  2. ITRIZOLE [Suspect]
     Active Substance: ITRACONAZOLE
     Indication: BRONCHOPULMONARY ASPERGILLOSIS
     Route: 065
     Dates: start: 20190823, end: 20190911

REACTIONS (2)
  - Stevens-Johnson syndrome [Recovered/Resolved]
  - Drug interaction [Unknown]

NARRATIVE: CASE EVENT DATE: 20190905
